FAERS Safety Report 5028629-0 (Version None)
Quarter: 2006Q2

REPORT INFORMATION
  Report Type: 
  Country: None (occurrence: None)
  Receive Date: 20060501
  Receipt Date: 20060220
  Transmission Date: 20061013
  Serious: No
  Sender: FDA-Public Use
  Company Number: 200611048US

PATIENT
  Age: 36 Year
  Sex: Female
  Weight: 98 kg

DRUGS (10)
  1. KETEK [Suspect]
     Indication: BRONCHITIS
     Dosage: 800 MG QD PO
     Route: 048
     Dates: start: 20050210, end: 20050201
  2. KETEK [Suspect]
     Indication: SINUSITIS
     Dosage: 800 MG QD PO
     Route: 048
     Dates: start: 20050210, end: 20050201
  3. ERGOCALCIFEROL [Concomitant]
  4. ASCORBIC ACID [Concomitant]
  5. FOLIC ACID [Concomitant]
  6. THIAMINE HCL [Concomitant]
  7. RETINOL [Concomitant]
  8. RIBOFLAVIN TAB [Concomitant]
  9. NICOTINAMIDE [Concomitant]
  10. PANTHENOL (MULTIVITAMINS) [Concomitant]

REACTIONS (2)
  - BLISTER [None]
  - LATEX ALLERGY [None]
